FAERS Safety Report 10618352 (Version 3)
Quarter: 2015Q3

REPORT INFORMATION
  Report Type: Spontaneous
  Country: FR (occurrence: FR)
  Receive Date: 20141202
  Receipt Date: 20150907
  Transmission Date: 20151125
  Serious: Yes (Hospitalization)
  Sender: FDA-Public Use
  Company Number: FR-MERCK-1411FRA012052

PATIENT
  Age: 13 Year
  Sex: Female

DRUGS (11)
  1. AMIKLIN [Suspect]
     Active Substance: AMIKACIN SULFATE
     Indication: FEBRILE BONE MARROW APLASIA
     Dosage: 700 MG, QD
     Route: 042
     Dates: start: 20141112, end: 20141114
  2. MOPRAL (OMEPRAZOLE) [Concomitant]
     Active Substance: OMEPRAZOLE SODIUM
     Dosage: 1 DF, QD
     Route: 048
  3. TAZOCILLINE [Suspect]
     Active Substance: PIPERACILLIN SODIUM\TAZOBACTAM SODIUM
     Indication: FEBRILE BONE MARROW APLASIA
     Dosage: 3600MG X4 QD
     Route: 042
     Dates: start: 20141101, end: 20141114
  4. CANCIDAS [Suspect]
     Active Substance: CASPOFUNGIN ACETATE
     Indication: FEBRILE BONE MARROW APLASIA
     Dosage: 70 MG, QD
     Route: 042
     Dates: start: 20141111
  5. CANCIDAS [Suspect]
     Active Substance: CASPOFUNGIN ACETATE
     Dosage: 50 MG, QD
     Dates: end: 20141114
  6. ACETAMINOPHEN. [Concomitant]
     Active Substance: ACETAMINOPHEN
     Indication: PAIN
     Dosage: 500 MG, PRN (IF PAIN)
  7. BACTRIM [Concomitant]
     Active Substance: SULFAMETHOXAZOLE\TRIMETHOPRIM
     Dosage: 800 MG, TIW
  8. IMIPENEM AND CILASTATIN [Suspect]
     Active Substance: CILASTATIN SODIUM\IMIPENEM
     Indication: FEBRILE BONE MARROW APLASIA
     Dosage: 500 MG, QID
     Route: 042
     Dates: start: 20141112, end: 20141114
  9. LUTERAN [Concomitant]
     Active Substance: CHLORMADINONE ACETATE
     Dosage: 1 DF, QD
  10. VANCOMYCIN [Suspect]
     Active Substance: VANCOMYCIN
     Indication: FEBRILE BONE MARROW APLASIA
     Dosage: 1.5 G, UNK
     Route: 042
     Dates: start: 20141103, end: 20141113
  11. PROVAMES [Concomitant]
     Active Substance: ESTRADIOL
     Dosage: 1 DF, QD
     Route: 048

REACTIONS (2)
  - Hypotension [Recovered/Resolved]
  - Toxic skin eruption [Recovered/Resolved]

NARRATIVE: CASE EVENT DATE: 20141112
